FAERS Safety Report 8955911 (Version 2)
Quarter: 2012Q4

REPORT INFORMATION
  Report Type: 
  Country: JP (occurrence: JP)
  Receive Date: 20121210
  Receipt Date: 20121218
  Transmission Date: 20130627
  Serious: Yes (Death)
  Sender: FDA-Public Use
  Company Number: JP-ELI_LILLY_AND_COMPANY-JP201211002647

PATIENT
  Age: 37 Year
  Sex: Male

DRUGS (10)
  1. ZYPREXA [Suspect]
     Indication: SCHIZOPHRENIA
     Dosage: 10 mg, qd
     Route: 048
     Dates: start: 20110809, end: 20110816
  2. ZYPREXA [Suspect]
     Dosage: 20 mg, qd
     Route: 048
     Dates: start: 20110817
  3. PYRETHIA [Concomitant]
     Indication: INSOMNIA
     Dosage: 25 mg, qd
     Route: 048
     Dates: start: 20110805
  4. CONTOMIN [Concomitant]
     Indication: INSOMNIA
     Dosage: 100 mg, qd
     Route: 048
     Dates: start: 20120210
  5. EURODIN [Concomitant]
     Indication: INSOMNIA
     Dosage: 4 mg, qd
     Route: 048
     Dates: start: 20110922
  6. ROHYPNOL [Concomitant]
     Indication: INSOMNIA
     Dosage: 2 mg, qd
     Route: 048
     Dates: start: 20110905
  7. VEGETAMIN A [Concomitant]
     Indication: INSOMNIA
     Dosage: 2 DF, qd
     Route: 048
     Dates: start: 20111126
  8. WYPAX [Concomitant]
     Indication: ANXIETY
     Dosage: 3 mg, qd
     Route: 048
     Dates: start: 20110912
  9. SOLANAX [Concomitant]
     Indication: ANXIETY
     Dosage: 2.4 mg, qd
     Route: 048
     Dates: start: 20110930
  10. LODOPIN [Concomitant]
     Indication: PROPHYLAXIS
     Dosage: 150 mg, qd
     Route: 048
     Dates: start: 20110116

REACTIONS (3)
  - Brain contusion [Fatal]
  - Road traffic accident [Fatal]
  - Overdose [Unknown]
